FAERS Safety Report 7803781-X (Version None)
Quarter: 2011Q4

REPORT INFORMATION
  Report Type: 
  Country: None (occurrence: None)
  Receive Date: 20111010
  Receipt Date: 20111004
  Transmission Date: 20120403
  Serious: No
  Sender: FDA-Public Use
  Company Number: US-PFIZER INC-2011157169

PATIENT
  Sex: Female

DRUGS (11)
  1. LIDOCAINE [Suspect]
     Dosage: 1 CC, 1 IN 1 DAY
     Route: 030
     Dates: start: 20110215
  2. DEPO-MEDROL [Suspect]
     Indication: PLANTAR FASCIITIS
     Dosage: 0.5 CC, 1 IN 1 DAY
     Dates: start: 20110125, end: 20110125
  3. DEXAMETHASONE [Suspect]
     Indication: PLANTAR FASCIITIS
     Dosage: 0.5 CC, 1 IN 1 DAY
     Route: 030
     Dates: start: 20110125, end: 20110125
  4. CLARITIN [Concomitant]
     Indication: HYPERSENSITIVITY
  5. MONTELUKAST SODIUM [Concomitant]
     Indication: SEASONAL ALLERGY
     Dosage: UNK
  6. DEXAMETHASONE [Suspect]
     Dosage: 0.5 CC, 1 IN 1 DAY
     Route: 030
     Dates: start: 20110408, end: 20110408
  7. LIDOCAINE [Suspect]
     Indication: PLANTAR FASCIITIS
     Dosage: 1 CC, 1 IN 1 DAY
     Route: 030
     Dates: start: 20110125, end: 20110125
  8. DEXAMETHASONE [Suspect]
     Dosage: 0.5 CC, 1 IN 1 DAY
     Route: 030
     Dates: start: 20110225, end: 20110225
  9. DEPO-MEDROL [Suspect]
     Dosage: 0.5 CC, 1 IN 1 DAY
     Route: 030
     Dates: start: 20110225, end: 20110225
  10. LIDOCAINE [Suspect]
     Dosage: 1 CC, 1 IN 1 DAY
     Route: 030
     Dates: start: 20110408, end: 20110408
  11. CLARITIN [Concomitant]
     Indication: SEASONAL ALLERGY
     Dosage: UNK

REACTIONS (6)
  - PARAESTHESIA [None]
  - ALOPECIA [None]
  - FATIGUE [None]
  - HYPOAESTHESIA [None]
  - ANXIETY [None]
  - INSOMNIA [None]
